FAERS Safety Report 6772004-5 (Version None)
Quarter: 2010Q2

REPORT INFORMATION
  Report Type: 
  Country: None (occurrence: None)
  Receive Date: 20100616
  Receipt Date: 20091110
  Transmission Date: 20101027
  Serious: No
  Sender: FDA-Public Use
  Company Number: US-ASTRAZENECA-2009SE11780

PATIENT
  Age: 58 Year
  Sex: Female
  Weight: 69.4 kg

DRUGS (3)
  1. RHINOCORT [Suspect]
     Indication: SEASONAL ALLERGY
     Dosage: 32 MCG 120 METER SPRAY/UNIT
     Route: 045
  2. ANACIN [Concomitant]
  3. ROLAIDS [Concomitant]

REACTIONS (4)
  - DRUG DOSE OMISSION [None]
  - EYE IRRITATION [None]
  - HEADACHE [None]
  - VISION BLURRED [None]
